FAERS Safety Report 22097127 (Version 2)
Quarter: 2023Q2

REPORT INFORMATION
  Report Type: Report from Study
  Country: DE (occurrence: DE)
  Receive Date: 20230315
  Receipt Date: 20230517
  Transmission Date: 20230722
  Serious: Yes (Hospitalization)
  Sender: FDA-Public Use
  Company Number: DE-ABBVIE-4341153

PATIENT
  Age: 28 Year
  Sex: Male

DRUGS (3)
  1. SKYRIZI [Suspect]
     Active Substance: RISANKIZUMAB-RZAA
     Indication: Psoriasis
     Route: 058
     Dates: start: 20221227
  2. IBUPROFEN [Concomitant]
     Active Substance: IBUPROFEN
     Indication: Pyrexia
  3. IBUPROFEN [Concomitant]
     Active Substance: IBUPROFEN
     Indication: Pyrexia

REACTIONS (10)
  - Skin disorder [Not Recovered/Not Resolved]
  - Fatigue [Recovered/Resolved]
  - Palpitations [Recovered/Resolved]
  - Pruritus [Recovered/Resolved]
  - Heart rate increased [Recovered/Resolved]
  - Chills [Recovered/Resolved]
  - Night sweats [Recovered/Resolved]
  - Gastrointestinal disorder [Recovered/Resolved]
  - Pyrexia [Recovered/Resolved]
  - Hepatic enzyme increased [Unknown]

NARRATIVE: CASE EVENT DATE: 20221201
